FAERS Safety Report 12894267 (Version 1)
Quarter: 2016Q4

REPORT INFORMATION
  Report Type: Spontaneous
  Country: CH (occurrence: CH)
  Receive Date: 20161028
  Receipt Date: 20161028
  Transmission Date: 20170207
  Serious: Yes (Hospitalization)
  Sender: FDA-Public Use
  Company Number: CH-TEVA-706505ISR

PATIENT
  Age: 77 Year
  Sex: Male
  Weight: 84.75 kg

DRUGS (4)
  1. ASPIRIN CARDIO [Concomitant]
     Active Substance: ASPIRIN
     Dosage: 100 MILLIGRAM DAILY; STRENGTH: 100MG
     Route: 048
  2. PANTOZOL [Concomitant]
     Active Substance: PANTOPRAZOLE SODIUM
     Dosage: 40 MILLIGRAM DAILY; ENTERIC COATED TABLETS, STRENGTH: 40MG
     Route: 048
  3. SIMCORA [Concomitant]
     Active Substance: SIMVASTATIN
     Dosage: 40 MILLIGRAM DAILY; LAYERED TABLETS, STRENGTH: 40MG
     Route: 048
  4. CO-AMOXI [Suspect]
     Active Substance: AMOXICILLIN\CLAVULANATE POTASSIUM
     Indication: BURSITIS
     Dosage: 6660 MILLIGRAM DAILY; SOLUBLE POWDERS
     Route: 041
     Dates: start: 20160812, end: 201608

REACTIONS (1)
  - Meningitis aseptic [Recovered/Resolved]

NARRATIVE: CASE EVENT DATE: 20160815
